FAERS Safety Report 14203649 (Version 3)
Quarter: 2018Q3

REPORT INFORMATION
  Report Type: Spontaneous
  Country: US (occurrence: US)
  Receive Date: 20171120
  Receipt Date: 20180723
  Transmission Date: 20181010
  Serious: No
  Sender: FDA-Public Use
  Company Number: US-PFIZER INC-2017493183

PATIENT
  Age: 48 Year
  Sex: Female
  Weight: 65 kg

DRUGS (8)
  1. VITAMIN B12 [Concomitant]
     Active Substance: CYANOCOBALAMIN
     Dosage: 2500 UG, DAILY
  2. ASTRAGALUS GUMMIFER [Concomitant]
     Active Substance: UNSPECIFIED INGREDIENT
     Dosage: 31125 MG, UNK
  3. STRESS B COMPLEX [Concomitant]
     Dosage: UNK
  4. IBRANCE [Suspect]
     Active Substance: PALBOCICLIB
     Dosage: 125 MG, CYCLIC (1 CAPSULE EVERY DAY BY MOUTH FOR 21 DAYS AND OFF FOR 7 DAYS)
     Route: 048
     Dates: start: 2017
  5. LETROZOLE. [Concomitant]
     Active Substance: LETROZOLE
     Dosage: 2.5 MG, 1X/DAY
     Dates: start: 201705
  6. VITAMIN C [Concomitant]
     Active Substance: ASCORBIC ACID
     Dosage: 3000 MG, DAILY
  7. SENOKOT [Concomitant]
     Active Substance: SENNOSIDES
     Indication: CONSTIPATION
     Dosage: UNK, DAILY, 2 EVERY NIGHT
  8. VITAMIN C [Concomitant]
     Active Substance: ASCORBIC ACID
     Dosage: 1000 MG, DAILY

REACTIONS (9)
  - Sensation of blood flow [Recovering/Resolving]
  - Neoplasm progression [Unknown]
  - Respiratory tract congestion [Recovering/Resolving]
  - Condition aggravated [Recovering/Resolving]
  - Asthenia [Recovering/Resolving]
  - White blood cell count decreased [Recovering/Resolving]
  - Infection [Recovering/Resolving]
  - Constipation [Recovering/Resolving]
  - Neutrophil count decreased [Recovering/Resolving]

NARRATIVE: CASE EVENT DATE: 20171013
